FAERS Safety Report 23284539 (Version 1)
Quarter: 2023Q4

REPORT INFORMATION
  Report Type: Spontaneous
  Country: US (occurrence: US)
  Receive Date: 20231211
  Receipt Date: 20231211
  Transmission Date: 20240110
  Serious: No
  Sender: FDA-Public Use
  Company Number: US-BRISTOL-MYERS SQUIBB COMPANY-2023-176047

PATIENT
  Age: 83 Year
  Sex: Female

DRUGS (2)
  1. ELIQUIS [Suspect]
     Active Substance: APIXABAN
     Indication: Product used for unknown indication
     Route: 048
  2. ELIQUIS [Suspect]
     Active Substance: APIXABAN
     Dosage: 5MG IN MORNING AND WAS CUTTING 5MG IN HALF AT NIGHT TO TAKE 2.5MG
     Route: 048

REACTIONS (3)
  - Haemorrhage [Unknown]
  - Treatment noncompliance [Unknown]
  - Off label use [Unknown]
